FAERS Safety Report 7911677-8 (Version None)
Quarter: 2011Q4

REPORT INFORMATION
  Report Type: 
  Country: None (occurrence: None)
  Receive Date: 20111114
  Receipt Date: 20111107
  Transmission Date: 20120403
  Serious: Yes (Death)
  Sender: FDA-Public Use
  Company Number: JP-SANOFI-AVENTIS-2011SA003726

PATIENT
  Age: 77 Year
  Sex: Female

DRUGS (4)
  1. LEVOLEUCOVORIN CALCIUM [Suspect]
     Route: 041
  2. OXALIPLATIN [Suspect]
     Route: 065
  3. FLUOROURACIL [Suspect]
     Route: 040
  4. FLUOROURACIL [Suspect]
     Route: 041

REACTIONS (1)
  - INTESTINAL FISTULA [None]
